FAERS Safety Report 20599263 (Version 1)
Quarter: 2022Q1

REPORT INFORMATION
  Report Type: Spontaneous
  Country: US (occurrence: US)
  Receive Date: 20220315
  Receipt Date: 20220315
  Transmission Date: 20220423
  Serious: No
  Sender: FDA-Public Use
  Company Number: US-SA-SAC20220311000527

PATIENT
  Sex: Female

DRUGS (7)
  1. DUPIXENT [Suspect]
     Active Substance: DUPILUMAB
     Indication: Idiopathic urticaria
     Dosage: 300 MG, QOW
     Route: 058
  2. DUPIXENT [Suspect]
     Active Substance: DUPILUMAB
     Indication: Pseudomonas infection
  3. DUPIXENT [Suspect]
     Active Substance: DUPILUMAB
     Indication: Cystic fibrosis
  4. DUPIXENT [Suspect]
     Active Substance: DUPILUMAB
     Indication: Asthma
  5. TRIKAFTA [Concomitant]
     Active Substance: ELEXACAFTOR\IVACAFTOR\TEZACAFTOR
  6. AZITHROMYCIN [Concomitant]
     Active Substance: AZITHROMYCIN
  7. CITALOPRAM [Concomitant]
     Active Substance: CITALOPRAM HYDROBROMIDE

REACTIONS (2)
  - Product use in unapproved indication [Unknown]
  - Product use issue [Unknown]
